FAERS Safety Report 9456466 (Version 1)
Quarter: 2013Q3

REPORT INFORMATION
  Report Type: Spontaneous
  Country: LB (occurrence: LB)
  Receive Date: 20130813
  Receipt Date: 20130813
  Transmission Date: 20140515
  Serious: Yes (Death, Hospitalization)
  Sender: FDA-Public Use
  Company Number: LB-ELI_LILLY_AND_COMPANY-LB201308000089

PATIENT
  Sex: Male
  Weight: 70 kg

DRUGS (2)
  1. ALIMTA [Suspect]
     Indication: ADENOCARCINOMA
     Dosage: 700 MG, EVERY 3 WEEKS
     Route: 042
     Dates: start: 20130125, end: 20130329
  2. FUROSEMIDE [Concomitant]
     Indication: HYPERTENSION
     Dosage: 40 MG, UNKNOWN

REACTIONS (1)
  - Diarrhoea [Fatal]
